FAERS Safety Report 9727158 (Version 2)
Quarter: 2013Q4

REPORT INFORMATION
  Report Type: Spontaneous
  Country: US (occurrence: US)
  Receive Date: 20131203
  Receipt Date: 20131203
  Transmission Date: 20140711
  Serious: No
  Sender: FDA-Public Use
  Company Number: US-BRISTOL-MYERS SQUIBB COMPANY-19167170

PATIENT
  Age: 5 Decade
  Sex: Male

DRUGS (1)
  1. KOMBIGLYZE XR [Suspect]
     Dosage: TABS

REACTIONS (2)
  - Medication residue present [Unknown]
  - Drug ineffective [Unknown]
